FAERS Safety Report 11178269 (Version 3)
Quarter: 2016Q2

REPORT INFORMATION
  Report Type: Spontaneous
  Country: US (occurrence: US)
  Receive Date: 20150610
  Receipt Date: 20160413
  Transmission Date: 20160815
  Serious: Yes (Hospitalization, Other)
  Sender: FDA-Public Use
  Company Number: US-SA-2015SA077518

PATIENT
  Age: 50 Year
  Sex: Male

DRUGS (14)
  1. FLOLAN [Suspect]
     Active Substance: EPOPROSTENOL SODIUM
     Indication: PULMONARY HYPERTENSION
     Dosage: DOSE 47.5 NG/KG/MIN?ROUTE IV INFUSION
     Route: 042
     Dates: start: 19971202
  2. FLOLAN [Suspect]
     Active Substance: EPOPROSTENOL SODIUM
     Indication: COR PULMONALE CHRONIC
     Dosage: 4.75 NG/KG/MIN CONTINOUSLY
     Route: 042
  3. LASIX [Suspect]
     Active Substance: FUROSEMIDE
     Route: 065
  4. FLOLAN [Suspect]
     Active Substance: EPOPROSTENOL SODIUM
     Indication: COR PULMONALE CHRONIC
     Dosage: DOSE 47.5 NG/KG/MIN?ROUTE IV INFUSION
     Route: 042
     Dates: start: 19971202
  5. FLOLAN [Suspect]
     Active Substance: EPOPROSTENOL SODIUM
     Indication: COR PULMONALE CHRONIC
     Dosage: INTRAVENOUS INFUSION
     Route: 042
     Dates: start: 19990510
  6. FLOLAN [Suspect]
     Active Substance: EPOPROSTENOL SODIUM
     Indication: COR PULMONALE CHRONIC
     Dosage: DOSE 47.5 NG/KG/MIN?ROUTE IV INFUSION
     Route: 042
     Dates: start: 19971202
  7. FLOLAN [Suspect]
     Active Substance: EPOPROSTENOL SODIUM
     Indication: COR PULMONALE CHRONIC
     Dosage: DOSE 47.5 NG/KG/MIN?ROUTE IV INFUSION
     Route: 042
     Dates: start: 19971202
  8. FLOLAN [Suspect]
     Active Substance: EPOPROSTENOL SODIUM
     Indication: PULMONARY HYPERTENSION
     Dosage: 4.75 NG/KG/MIN CONTINOUSLY
     Route: 042
  9. REVATIO [Concomitant]
     Active Substance: SILDENAFIL CITRATE
  10. FLOLAN [Suspect]
     Active Substance: EPOPROSTENOL SODIUM
     Indication: PULMONARY HYPERTENSION
     Dosage: INTRAVENOUS INFUSION
     Route: 042
     Dates: start: 19990510
  11. FLOLAN [Suspect]
     Active Substance: EPOPROSTENOL SODIUM
     Indication: PULMONARY HYPERTENSION
     Route: 042
  12. FLOLAN [Suspect]
     Active Substance: EPOPROSTENOL SODIUM
     Indication: COR PULMONALE CHRONIC
     Route: 042
  13. FLOLAN [Suspect]
     Active Substance: EPOPROSTENOL SODIUM
     Indication: PULMONARY HYPERTENSION
     Dosage: DOSE 47.5 NG/KG/MIN?ROUTE IV INFUSION
     Route: 042
     Dates: start: 19971202
  14. FLOLAN [Suspect]
     Active Substance: EPOPROSTENOL SODIUM
     Indication: PULMONARY HYPERTENSION
     Dosage: DOSE 47.5 NG/KG/MIN?ROUTE IV INFUSION
     Route: 042
     Dates: start: 19971202

REACTIONS (9)
  - Disease progression [Unknown]
  - Incorrect dose administered [Unknown]
  - Cardiac failure [Unknown]
  - Constipation [Unknown]
  - Weight decreased [Recovering/Resolving]
  - Fluid retention [Unknown]
  - Haemoptysis [Recovering/Resolving]
  - Pericardial effusion [Recovering/Resolving]
  - Hospitalisation [Unknown]

NARRATIVE: CASE EVENT DATE: 201504
